FAERS Safety Report 18657301 (Version 1)
Quarter: 2020Q4

REPORT INFORMATION
  Report Type: Spontaneous
  Country: US (occurrence: US)
  Receive Date: 20201223
  Receipt Date: 20201223
  Transmission Date: 20210114
  Serious: Yes (Hospitalization)
  Sender: FDA-Public Use
  Company Number: US-SAGENT PHARMACEUTICALS-2020SAG002740

PATIENT

DRUGS (18)
  1. ONIVYDE [Suspect]
     Active Substance: IRINOTECAN HYDROCHLORIDE
     Indication: CHOLANGIOCARCINOMA
     Dosage: 130 MG,Q2W
     Route: 040
     Dates: start: 20200914
  2. PROCHLORPERAZINE. [Concomitant]
     Active Substance: PROCHLORPERAZINE
     Indication: VOMITING
  3. VALACYCLOVIR [Concomitant]
     Active Substance: VALACYCLOVIR HYDROCHLORIDE
     Indication: PRODUCT USED FOR UNKNOWN INDICATION
     Dosage: 600 MG, Q12H
     Route: 048
  4. RED GINSENG [Concomitant]
     Active Substance: ASIAN GINSENG
     Indication: PRODUCT USED FOR UNKNOWN INDICATION
     Dosage: UNK, QD
  5. FLUOROURACIL. [Suspect]
     Active Substance: FLUOROURACIL
     Indication: CHOLANGIOCARCINOMA
     Dosage: 4440 MG, Q2W
     Route: 040
     Dates: start: 20200914
  6. NIVOLUMAB [Suspect]
     Active Substance: NIVOLUMAB
     Indication: CHOLANGIOCARCINOMA
     Dosage: 240 MG, Q2W
     Route: 040
     Dates: start: 20200914
  7. ACETAMINOPHEN. [Concomitant]
     Active Substance: ACETAMINOPHEN
     Indication: PAIN
     Dosage: 325 MG, QID, PRN
     Route: 048
  8. OMEPRAZOLE. [Concomitant]
     Active Substance: OMEPRAZOLE
     Dosage: 20 MG, QD
     Route: 048
  9. LEUCOVORIN. [Suspect]
     Active Substance: LEUCOVORIN
     Indication: CHOLANGIOCARCINOMA
     Dosage: 740 MG, Q2W
     Route: 040
     Dates: start: 20200914
  10. APIXABAN [Concomitant]
     Active Substance: APIXABAN
     Indication: PRODUCT USED FOR UNKNOWN INDICATION
     Dosage: 6 MG, BID
     Route: 048
  11. PROCHLORPERAZINE. [Concomitant]
     Active Substance: PROCHLORPERAZINE
     Indication: NAUSEA
     Dosage: 10 MG, Q6H
     Route: 048
  12. TRAMADOL. [Concomitant]
     Active Substance: TRAMADOL
     Indication: PAIN
     Dosage: 60 MG, Q12H
     Route: 048
  13. LOSARTAN. [Concomitant]
     Active Substance: LOSARTAN
     Indication: PRODUCT USED FOR UNKNOWN INDICATION
     Dosage: 100 MG, QD
     Route: 048
  14. LORAZEPAM. [Concomitant]
     Active Substance: LORAZEPAM
     Indication: ANXIETY
     Dosage: 0.5 MG, TID
     Route: 048
  15. OLANZAPINE. [Concomitant]
     Active Substance: OLANZAPINE
     Indication: PRODUCT USED FOR UNKNOWN INDICATION
     Dosage: 10 MG, QD
     Route: 048
  16. POTASSIUM CHLORIDE. [Concomitant]
     Active Substance: POTASSIUM CHLORIDE
     Indication: PRODUCT USED FOR UNKNOWN INDICATION
     Dosage: 20 MEQ, BID
     Route: 048
  17. ALBUTEROL. [Concomitant]
     Active Substance: ALBUTEROL
     Indication: WHEEZING
     Dosage: 0.083% , 3 ML ORAL INHALATION
  18. MULTIVITAMIN                       /00097801/ [Concomitant]
     Active Substance: VITAMINS
     Dosage: 1 DF, QD
     Route: 048

REACTIONS (2)
  - Biliary obstruction [Recovered/Resolved]
  - Cholangitis [Recovered/Resolved]

NARRATIVE: CASE EVENT DATE: 20201031
